FAERS Safety Report 6403459-3 (Version None)
Quarter: 2009Q4

REPORT INFORMATION
  Report Type: 
  Country: None (occurrence: None)
  Receive Date: 20091013
  Receipt Date: 20091005
  Transmission Date: 20100525
  Serious: Yes (Other)
  Sender: FDA-Public Use
  Company Number: 2009SP029013

PATIENT
  Age: 47 Year
  Sex: Female

DRUGS (4)
  1. MIRTAZAPINE [Suspect]
     Indication: DEPRESSION
     Dosage: 15 MG; QD; PO
     Route: 048
     Dates: start: 20090925, end: 20091002
  2. AMOXAPINE [Concomitant]
  3. TRAZODONE HYDROCHLORIDE [Concomitant]
  4. RILMAZAFONE HYDORCHLORIDE HYDRATE [Concomitant]

REACTIONS (3)
  - AREFLEXIA [None]
  - GENERALISED OEDEMA [None]
  - URINE OUTPUT DECREASED [None]
